FAERS Safety Report 18409918 (Version 1)
Quarter: 2020Q4

REPORT INFORMATION
  Report Type: Spontaneous
  Country: US (occurrence: US)
  Receive Date: 20201021
  Receipt Date: 20201021
  Transmission Date: 20210114
  Serious: No
  Sender: FDA-Public Use
  Company Number: None

PATIENT
  Age: 43 Year
  Sex: Female

DRUGS (1)
  1. TARGRETIN [Suspect]
     Active Substance: BEXAROTENE
     Indication: CUTANEOUS T-CELL LYMPHOMA RECURRENT
     Route: 048
     Dates: start: 202001, end: 202010

REACTIONS (3)
  - Therapy change [None]
  - Condition aggravated [None]
  - Cutaneous T-cell lymphoma recurrent [None]

NARRATIVE: CASE EVENT DATE: 20201020
